FAERS Safety Report 19201015 (Version 1)
Quarter: 2021Q2

REPORT INFORMATION
  Report Type: Spontaneous
  Country: GB (occurrence: GB)
  Receive Date: 20210430
  Receipt Date: 20210430
  Transmission Date: 20210717
  Serious: Yes (Hospitalization)
  Sender: FDA-Public Use
  Company Number: GB-VERTEX PHARMACEUTICALS-2021-006727

PATIENT
  Sex: Male

DRUGS (9)
  1. DOCUSATE [Concomitant]
     Active Substance: DOCUSATE
  2. VENTOLIN [Concomitant]
     Active Substance: ALBUTEROL SULFATE
  3. SYMKEVI [Suspect]
     Active Substance: IVACAFTOR\TEZACAFTOR
     Indication: CYSTIC FIBROSIS
     Dosage: 1 DOSAGE FORM (100MG TEZACAFTOR/150MG IVACAFTOR), QD (IN THE MORNING)
     Route: 048
     Dates: start: 202009
  4. HYPERTONIC SALINE SOLUTION [Concomitant]
     Active Substance: SODIUM CHLORIDE
  5. DOXYCYCLINE. [Concomitant]
     Active Substance: DOXYCYCLINE
  6. VITAMIN D [COLECALCIFEROL] [Concomitant]
     Active Substance: CHOLECALCIFEROL
  7. FOSTAIR [Concomitant]
     Active Substance: BECLOMETHASONE\FORMOTEROL
     Dosage: INHALER
  8. KALYDECO [Suspect]
     Active Substance: IVACAFTOR
     Indication: CYSTIC FIBROSIS
     Dosage: 150 MG, QD (IN THE EVENING)
     Route: 048
     Dates: start: 202009
  9. CALCICHEW [Concomitant]
     Active Substance: CALCIUM CARBONATE

REACTIONS (1)
  - Infective pulmonary exacerbation of cystic fibrosis [Unknown]

NARRATIVE: CASE EVENT DATE: 20210412
